FAERS Safety Report 14233749 (Version 2)
Quarter: 2018Q2

REPORT INFORMATION
  Report Type: Spontaneous
  Country: US (occurrence: US)
  Receive Date: 20171128
  Receipt Date: 20180601
  Transmission Date: 20180711
  Serious: No
  Sender: FDA-Public Use
  Company Number: US-ASTRAZENECA-2017SF13589

PATIENT
  Age: 78 Year
  Sex: Female
  Weight: 59 kg

DRUGS (1)
  1. TUDORZA PRESSAIR [Suspect]
     Active Substance: ACLIDINIUM BROMIDE
     Indication: EMPHYSEMA
     Dosage: 400 MICROGRAM TWO TIMES A DAY FOR 2 YEARS, OR MAYBE AS EARLY AS 2014
     Route: 055

REACTIONS (8)
  - Upper respiratory tract infection [Recovered/Resolved with Sequelae]
  - Dysphonia [Not Recovered/Not Resolved]
  - Clostridium difficile colitis [Recovered/Resolved]
  - Drug dose omission [Unknown]
  - Device failure [Unknown]
  - Intentional product misuse [Not Recovered/Not Resolved]
  - Vocal cord disorder [Not Recovered/Not Resolved]
  - Device issue [Not Recovered/Not Resolved]

NARRATIVE: CASE EVENT DATE: 2015
